FAERS Safety Report 10677364 (Version 1)
Quarter: 2014Q4

REPORT INFORMATION
  Report Type: Spontaneous
  Country: DK (occurrence: DK)
  Receive Date: 20141226
  Receipt Date: 20141226
  Transmission Date: 20150529
  Serious: Yes (Other)
  Sender: FDA-Public Use
  Company Number: PHHY2014DK166700

PATIENT
  Sex: Female

DRUGS (4)
  1. MUCOLYSIN [Suspect]
     Active Substance: TIOPRONIN
     Indication: PRODUCTIVE COUGH
     Dosage: 600 MG, QD
     Route: 048
     Dates: end: 2014
  2. PINEX [Suspect]
     Active Substance: ACETAMINOPHEN
     Indication: MALAISE
     Dosage: 500 MG, BID
     Route: 065
  3. MUCOLYSIN [Suspect]
     Active Substance: TIOPRONIN
     Indication: INFLUENZA
  4. IBUPROFEN. [Suspect]
     Active Substance: IBUPROFEN
     Indication: MALAISE
     Dosage: 200 MG, UNK
     Route: 065

REACTIONS (7)
  - Pharyngitis [Recovered/Resolved]
  - Paraesthesia oral [Recovered/Resolved]
  - Urticaria [Recovered/Resolved]
  - Swollen tongue [Recovered/Resolved]
  - Stomatitis [Recovered/Resolved]
  - Respiratory distress [Recovered/Resolved]
  - Heart rate increased [Recovered/Resolved]
